FAERS Safety Report 18431729 (Version 1)
Quarter: 2020Q4

REPORT INFORMATION
  Report Type: Spontaneous
  Country: CN (occurrence: CN)
  Receive Date: 20201027
  Receipt Date: 20201027
  Transmission Date: 20210114
  Serious: Yes (Other)
  Sender: FDA-Public Use
  Company Number: CN-MYLANLABS-2020M1089503

PATIENT
  Age: 81 Year
  Sex: Female

DRUGS (2)
  1. AZELASTINE MYLAN [Suspect]
     Active Substance: AZELASTINE
     Indication: CONJUNCTIVITIS
     Dosage: UNK (1 DROP), BID
     Dates: start: 20200824, end: 20200824
  2. LEVOFLOXACIN HYDROCHLORIDE [Concomitant]
     Active Substance: LEVOFLOXACIN HYDROCHLORIDE
     Indication: CONJUNCTIVITIS
     Dosage: 1 GRAM, QD
     Dates: start: 20200824, end: 20200824

REACTIONS (1)
  - Papilloedema [Recovering/Resolving]

NARRATIVE: CASE EVENT DATE: 20200824
